FAERS Safety Report 14107446 (Version 1)
Quarter: 2017Q4

REPORT INFORMATION
  Report Type: Spontaneous
  Country: US (occurrence: None)
  Receive Date: 20171019
  Receipt Date: 20171019
  Transmission Date: 20180321
  Serious: Yes (Hospitalization)
  Sender: FDA-Public Use
  Company Number: None

PATIENT
  Age: 19 Year
  Sex: Female
  Weight: 86 kg

DRUGS (6)
  1. CYTARABINE. [Suspect]
     Active Substance: CYTARABINE
     Dates: end: 20140114
  2. VINCRISTINE SULFATE. [Suspect]
     Active Substance: VINCRISTINE SULFATE
     Dates: end: 20140203
  3. PREDNISONE. [Suspect]
     Active Substance: PREDNISONE
     Dates: end: 20140203
  4. ONCASPAR [Suspect]
     Active Substance: PEGASPARGASE
     Dates: end: 20140119
  5. DAUNORUBICIN [Suspect]
     Active Substance: DAUNORUBICIN
     Dates: end: 20140203
  6. METHOTREXATE. [Suspect]
     Active Substance: METHOTREXATE
     Dates: end: 20140120

REACTIONS (7)
  - Dysarthria [None]
  - Haemorrhage intracranial [None]
  - Platelet count decreased [None]
  - Generalised tonic-clonic seizure [None]
  - Hypertension [None]
  - Tachycardia [None]
  - Agitation [None]

NARRATIVE: CASE EVENT DATE: 20140210
